FAERS Safety Report 10156667 (Version 1)
Quarter: 2014Q2

REPORT INFORMATION
  Report Type: Report from Study
  Country: CA (occurrence: CA)
  Receive Date: 20140507
  Receipt Date: 20140507
  Transmission Date: 20141212
  Serious: Yes (Death, Hospitalization)
  Sender: FDA-Public Use
  Company Number: CA-JNJFOC-20140501405

PATIENT
  Sex: Female

DRUGS (2)
  1. TYLENOL ELIXIR [Suspect]
     Indication: PRODUCT USED FOR UNKNOWN INDICATION
     Dosage: OVER TIME
     Route: 048
     Dates: start: 19930325, end: 19930329
  2. DILANTIN [Concomitant]
     Indication: PRODUCT USED FOR UNKNOWN INDICATION
     Route: 065

REACTIONS (3)
  - Acute hepatic failure [Fatal]
  - Overdose [Fatal]
  - Hepatic necrosis [Fatal]
